FAERS Safety Report 4847565-3 (Version None)
Quarter: 2005Q4

REPORT INFORMATION
  Report Type: 
  Country: None (occurrence: None)
  Receive Date: 20051205
  Receipt Date: 20051124
  Transmission Date: 20060501
  Serious: Yes (Other)
  Sender: FDA-Public Use
  Company Number: 2005-09-0538

PATIENT
  Age: 59 Year
  Sex: Male
  Weight: 55 kg

DRUGS (7)
  1. REBETOL [Suspect]
     Indication: HEPATITIS C
     Dosage: SEE IMAGE
     Route: 048
     Dates: start: 20040206, end: 20040610
  2. REBETOL [Suspect]
     Indication: HEPATITIS C
     Dosage: SEE IMAGE
     Route: 048
     Dates: start: 20040611, end: 20040805
  3. INTRON A [Suspect]
     Dosage: SEE IMAGE
     Route: 030
     Dates: start: 20040206, end: 20040220
  4. INTRON A [Suspect]
     Dosage: SEE IMAGE
     Route: 030
     Dates: start: 20040223, end: 20041029
  5. INTRON A [Suspect]
     Dosage: SEE IMAGE
     Route: 030
     Dates: start: 20041101, end: 20041224
  6. ZANTAC [Concomitant]
  7. SELBEX CAPSULES [Concomitant]

REACTIONS (4)
  - ANAEMIA [None]
  - MUSCULOSKELETAL PAIN [None]
  - RHEUMATOID ARTHRITIS [None]
  - SWELLING [None]
